FAERS Safety Report 5813580-6 (Version None)
Quarter: 2008Q3

REPORT INFORMATION
  Report Type: 
  Country: None (occurrence: None)
  Receive Date: 20080717
  Receipt Date: 20080711
  Transmission Date: 20090109
  Serious: Yes (Hospitalization)
  Sender: FDA-Public Use
  Company Number: JP-BRISTOL-MYERS SQUIBB COMPANY-14155436

PATIENT
  Age: 59 Year
  Sex: Female
  Weight: 65 kg

DRUGS (11)
  1. ABATACEPT [Suspect]
     Indication: RHEUMATOID ARTHRITIS
     Route: 041
     Dates: start: 20070629, end: 20080403
  2. RHEUMATREX [Suspect]
     Indication: RHEUMATOID ARTHRITIS
     Route: 048
     Dates: end: 20080414
  3. CYTOTEC [Concomitant]
     Indication: GASTRITIS PROPHYLAXIS
     Dosage: TABLET FORM
     Route: 048
  4. VOLTAREN [Concomitant]
     Indication: RHEUMATOID ARTHRITIS
     Dosage: CAPSULE FORM
     Route: 048
  5. MICARDIS [Concomitant]
     Indication: HYPERTENSION
     Dosage: TABLET FORM
     Route: 048
  6. PREDNISOLONE [Concomitant]
     Indication: RHEUMATOID ARTHRITIS
     Dosage: TABLET FORM
     Route: 048
     Dates: start: 20080208
  7. NORVASC [Concomitant]
     Indication: HYPERTENSION
     Dosage: TABLET FORM
     Route: 048
  8. MEVALOTIN TABS [Concomitant]
     Indication: HYPERLIPIDAEMIA
     Dosage: FORM - TABLET
     Route: 048
  9. ALENDRONATE SODIUM [Concomitant]
     Indication: OSTEOPOROSIS
     Dosage: TABLET FORM
     Route: 048
     Dates: start: 20071021
  10. ISODINE [Concomitant]
     Indication: UPPER RESPIRATORY TRACT INFECTION
     Dosage: FORM = MWH, STRENGHT- 7% POVIDONE-IODINE
     Route: 002
     Dates: start: 20070926
  11. GLYSENNID [Concomitant]
     Indication: CONSTIPATION
     Dosage: TABLET
     Route: 048
     Dates: start: 20080306

REACTIONS (1)
  - B-CELL LYMPHOMA [None]
